FAERS Safety Report 7362442-4 (Version None)
Quarter: 2011Q1

REPORT INFORMATION
  Report Type: 
  Country: None (occurrence: None)
  Receive Date: 20110318
  Receipt Date: 20110311
  Transmission Date: 20110831
  Serious: Yes (Other)
  Sender: FDA-Public Use
  Company Number: US-US-EMD SERONO, INC.-7047557

PATIENT
  Sex: Female
  Weight: 91 kg

DRUGS (3)
  1. REBIF [Suspect]
     Route: 058
     Dates: start: 20100101, end: 20100821
  2. REBIF [Suspect]
     Route: 058
     Dates: start: 20110121
  3. REBIF [Suspect]
     Indication: MULTIPLE SCLEROSIS
     Route: 058
     Dates: end: 20100101

REACTIONS (6)
  - MULTIPLE SCLEROSIS RELAPSE [None]
  - INJECTION SITE HAEMATOMA [None]
  - INFECTION [None]
  - INJECTION SITE ERYTHEMA [None]
  - EPSTEIN-BARR VIRUS INFECTION [None]
  - SKIN ULCER [None]
